FAERS Safety Report 16278357 (Version 5)
Quarter: 2020Q2

REPORT INFORMATION
  Report Type: Report from Study
  Country: US (occurrence: US)
  Receive Date: 20190506
  Receipt Date: 20200506
  Transmission Date: 20200713
  Serious: Yes (Other)
  Sender: FDA-Public Use
  Company Number: US-TAKEDA-2019TUS001344

PATIENT
  Age: 55 Year
  Sex: Female

DRUGS (4)
  1. PONATINIB [Suspect]
     Active Substance: PONATINIB
     Indication: LYMPHOCYTIC LEUKAEMIA
     Dosage: 30 MILLIGRAM, QD
     Route: 048
     Dates: start: 20190410
  2. PONATINIB [Suspect]
     Active Substance: PONATINIB
     Indication: ACUTE LYMPHOCYTIC LEUKAEMIA
     Dosage: 45 MILLIGRAM, QD
     Route: 048
     Dates: start: 20190117
  3. PONATINIB [Suspect]
     Active Substance: PONATINIB
     Dosage: 50 MILLIGRAM, QD
     Route: 065
  4. PONATINIB [Suspect]
     Active Substance: PONATINIB
     Indication: LYMPHOCYTIC LEUKAEMIA
     Dosage: 30 MILLIGRAM, QD
     Route: 048
     Dates: start: 201906

REACTIONS (7)
  - Arthralgia [Unknown]
  - Off label use [Unknown]
  - Surgery [Unknown]
  - Tooth extraction [Unknown]
  - Blood pressure increased [Unknown]
  - Abdominal pain upper [Recovering/Resolving]
  - Platelet count decreased [Unknown]

NARRATIVE: CASE EVENT DATE: 201906
